FAERS Safety Report 22641987 (Version 1)
Quarter: 2023Q2

REPORT INFORMATION
  Report Type: Spontaneous
  Country: TN (occurrence: TN)
  Receive Date: 20230626
  Receipt Date: 20230626
  Transmission Date: 20230721
  Serious: Yes (Other)
  Sender: FDA-Public Use
  Company Number: TN-BRISTOL-MYERS SQUIBB COMPANY-2023-088129

PATIENT
  Age: 36 Year
  Sex: Male

DRUGS (8)
  1. VIDAZA [Suspect]
     Active Substance: AZACITIDINE
     Indication: Leukaemia recurrent
     Dosage: DAY 1-5
     Route: 058
  2. VENETOCLAX [Suspect]
     Active Substance: VENETOCLAX
     Indication: Leukaemia recurrent
     Dosage: DAY 1
  3. VENETOCLAX [Suspect]
     Active Substance: VENETOCLAX
     Dosage: DAY 2
  4. VENETOCLAX [Suspect]
     Active Substance: VENETOCLAX
     Dosage: DAY 3
  5. VENETOCLAX [Suspect]
     Active Substance: VENETOCLAX
     Dosage: (DAYS 4-11)
  6. VENETOCLAX [Suspect]
     Active Substance: VENETOCLAX
  7. VENETOCLAX [Suspect]
     Active Substance: VENETOCLAX
  8. VORICONAZOLE [Concomitant]
     Active Substance: VORICONAZOLE
     Indication: Leukaemia recurrent

REACTIONS (3)
  - Hepatic cytolysis [Recovered/Resolved]
  - Thrombocytopenia [Unknown]
  - Klebsiella urinary tract infection [Unknown]
